FAERS Safety Report 11547707 (Version 1)
Quarter: 2015Q3

REPORT INFORMATION
  Report Type: Spontaneous
  Country: MX (occurrence: MX)
  Receive Date: 20150924
  Receipt Date: 20150924
  Transmission Date: 20151125
  Serious: Yes (Other)
  Sender: FDA-Public Use
  Company Number: MX-HTU-2015MX011460

PATIENT
  Age: 46 Year
  Sex: Female

DRUGS (1)
  1. ONICIT [Suspect]
     Active Substance: PALONOSETRON HYDROCHLORIDE
     Indication: PROPHYLAXIS OF NAUSEA AND VOMITING
     Dosage: 0.25 MG, UNK
     Route: 042
     Dates: start: 20150701

REACTIONS (4)
  - Suspected counterfeit product [Unknown]
  - Product contamination microbial [Unknown]
  - Transmission of an infectious agent via product [Unknown]
  - Burkholderia cepacia complex infection [Unknown]

NARRATIVE: CASE EVENT DATE: 20150701
